FAERS Safety Report 6901411-2 (Version None)
Quarter: 2010Q3

REPORT INFORMATION
  Report Type: 
  Country: None (occurrence: None)
  Receive Date: 20100803
  Receipt Date: 20080130
  Transmission Date: 20110219
  Serious: No
  Sender: FDA-Public Use
  Company Number: US-PFIZER INC-2008010062

PATIENT
  Sex: Female
  Weight: 58.2 kg

DRUGS (7)
  1. LYRICA [Suspect]
     Indication: FIBROMYALGIA
     Dates: start: 20080129
  2. WELLBUTRIN [Concomitant]
  3. ELAVIL [Concomitant]
  4. CARTIA XT [Concomitant]
  5. ACTONEL [Concomitant]
  6. PREMARIN [Concomitant]
  7. ANTIBIOTICS [Concomitant]

REACTIONS (3)
  - FATIGUE [None]
  - SEDATION [None]
  - SOMNOLENCE [None]
